FAERS Safety Report 18780891 (Version 1)
Quarter: 2021Q1

REPORT INFORMATION
  Report Type: Spontaneous
  Country: US (occurrence: US)
  Receive Date: 20210123
  Receipt Date: 20210123
  Transmission Date: 20210419
  Serious: Yes (Disabling, Other)
  Sender: FDA-Public Use
  Company Number: None

PATIENT
  Age: 35 Year
  Sex: Female
  Weight: 78.75 kg

DRUGS (16)
  1. PROGESTERONE. [Concomitant]
     Active Substance: PROGESTERONE
  2. FISH OIL [Concomitant]
     Active Substance: FISH OIL
  3. VITAMIN B COMPLEX [Concomitant]
     Active Substance: CYANOCOBALAMIN\DEXPANTHENOL\NIACINAMIDE\PYRIDOXINE HYDROCHLORIDE\RIBOFLAVIN 5^-PHOSPHATE SODIUM\THIAMINE HYDROCHLORIDE\VITAMIN B COMPLEX
  4. METOPROLOL. [Concomitant]
     Active Substance: METOPROLOL
  5. VYVANSE [Concomitant]
     Active Substance: LISDEXAMFETAMINE DIMESYLATE
  6. TRAZODONE [Concomitant]
     Active Substance: TRAZODONE HYDROCHLORIDE
  7. L?THEANINE [Concomitant]
     Active Substance: DIETARY SUPPLEMENT
  8. CITALOPRAM [Concomitant]
     Active Substance: CITALOPRAM HYDROBROMIDE
  9. MULTI?VITAMIN [Concomitant]
     Active Substance: .ALPHA.-TOCOPHEROL ACETATE, DL-\ASCORBIC ACID\CYANOCOBALAMIN\FLUORIDE ION\FOLIC ACID\NIACIN\PYRIDOXINE\RIBOFLAVIN\THIAMINE\VITAMIN A\VITAMIN D
  10. PANTOPRAZOLE [Concomitant]
     Active Substance: PANTOPRAZOLE
  11. PREGABALIN. [Concomitant]
     Active Substance: PREGABALIN
  12. MAGNESIUM [Concomitant]
     Active Substance: MAGNESIUM
  13. ESTRADIOL. [Concomitant]
     Active Substance: ESTRADIOL
  14. CALCIUM [Concomitant]
     Active Substance: CALCIUM
  15. PROBIOTIC [Concomitant]
     Active Substance: PROBIOTICS NOS
  16. UBRELVY [Suspect]
     Active Substance: UBROGEPANT
     Indication: MIGRAINE
     Dosage: ?          QUANTITY:1 TABLET(S);?
     Route: 048
     Dates: start: 20210122, end: 20210122

REACTIONS (6)
  - Vertigo [None]
  - Asthenia [None]
  - Fatigue [None]
  - Anxiety [None]
  - Nausea [None]
  - Dizziness [None]

NARRATIVE: CASE EVENT DATE: 20210122
